FAERS Safety Report 16425757 (Version 1)
Quarter: 2019Q2

REPORT INFORMATION
  Report Type: Spontaneous
  Country: US (occurrence: US)
  Receive Date: 20190506
  Receipt Date: 20190506
  Transmission Date: 20190711
  Serious: Yes (Other)
  Sender: FDA-Public Use
  Company Number: None

PATIENT
  Age: 61 Year
  Sex: Female
  Weight: 54.88 kg

DRUGS (1)
  1. LORSARTAN POTASSIUM HCTZ 100-12.5 [Suspect]
     Active Substance: HYDROCHLOROTHIAZIDE\LOSARTAN POTASSIUM
     Indication: HYPERTENSION
     Dates: start: 2011

REACTIONS (1)
  - Liver disorder [None]

NARRATIVE: CASE EVENT DATE: 20190306
